FAERS Safety Report 5883014-4 (Version None)
Quarter: 2008Q3

REPORT INFORMATION
  Report Type: 
  Country: None (occurrence: None)
  Receive Date: 20080913
  Receipt Date: 20080825
  Transmission Date: 20090109
  Serious: No
  Sender: FDA-Public Use
  Company Number: US-ABBOTT-08P-163-0472504-00

PATIENT
  Sex: Female
  Weight: 58.112 kg

DRUGS (4)
  1. HUMIRA [Suspect]
     Indication: RHEUMATOID ARTHRITIS
     Route: 058
     Dates: start: 20080801
  2. LEFLUNOMIDE [Concomitant]
     Indication: INFLAMMATION
     Route: 048
     Dates: start: 20070801
  3. PREDNISONE TAB [Concomitant]
     Indication: INFLAMMATION
     Route: 048
     Dates: start: 20070801
  4. FENTANYL [Concomitant]
     Indication: PAIN
     Route: 062
     Dates: start: 20070801

REACTIONS (2)
  - INJECTION SITE HAEMORRHAGE [None]
  - UNDERDOSE [None]
